FAERS Safety Report 9049111 (Version 1)
Quarter: 2013Q1

REPORT INFORMATION
  Report Type: Spontaneous
  Country: US (occurrence: None)
  Receive Date: 20130130
  Receipt Date: 20130130
  Transmission Date: 20140127
  Serious: Yes (Other)
  Sender: FDA-Public Use
  Company Number: None

PATIENT
  Age: 62 Year
  Sex: Male
  Weight: 102.06 kg

DRUGS (1)
  1. CIPROFLOXACIN 500MG [Suspect]
     Indication: URINARY TRACT INFECTION
     Dosage: 1  TABLET EVERY 12 HOURS
     Dates: start: 20120917, end: 20120917

REACTIONS (7)
  - Pain in extremity [None]
  - Tendon pain [None]
  - Gait disturbance [None]
  - Arthralgia [None]
  - Middle insomnia [None]
  - Hypoaesthesia [None]
  - Paraesthesia [None]
